FAERS Safety Report 6911461-8 (Version None)
Quarter: 2010Q3

REPORT INFORMATION
  Report Type: 
  Country: None (occurrence: None)
  Receive Date: 20100806
  Receipt Date: 20100727
  Transmission Date: 20110219
  Serious: Yes (Hospitalization, Other)
  Sender: FDA-Public Use
  Company Number: US-PFIZER INC-2010079478

PATIENT
  Age: 54 Year
  Sex: Female

DRUGS (20)
  1. AZITHROMYCIN [Suspect]
     Indication: PNEUMONIA
     Dosage: 500 MG, 1X/DAY
     Route: 042
  2. AZITHROMYCIN [Suspect]
     Dosage: 500 MG, 1X/DAY
     Route: 048
  3. CEFTRIAXONE SODIUM [Suspect]
     Indication: PNEUMONIA
     Dosage: 1 G, 1X/DAY
     Route: 042
  4. CEFTRIAXONE SODIUM [Suspect]
     Dosage: 2 G, 1X/DAY
     Route: 042
  5. CEFTRIAXONE SODIUM [Suspect]
     Dosage: 2 G (ON DAY 1,2), UNK
     Route: 042
  6. TACROLIMUS [Suspect]
     Indication: PROPHYLAXIS AGAINST TRANSPLANT REJECTION
     Dosage: 9MG/DAY
  7. TACROLIMUS [Suspect]
     Dosage: 4 MG, (DAY 1,2 AND 3 OF HOSPITALIZATION) AM (IN THE MORNING)
     Route: 065
  8. TACROLIMUS [Suspect]
     Dosage: 5 MG, (DAY 1 AND 2 OF HOSPITALIZATION) PM (IN THE EVENING)
     Route: 065
  9. TACROLIMUS [Suspect]
     Dosage: 0.5 MG, (DAY 4, 5,6 OF HOSPITALIZATION) AM (IN THE MORNING)
     Route: 065
  10. TACROLIMUS [Suspect]
     Dosage: 0.5 MG, (DAY 4,5 OF HOSPITALIZATION) PM (IN THE EVENING)
     Route: 065
  11. TACROLIMUS [Suspect]
     Dosage: 1 MG, (DAY 7 AND 9 OF HOSPITALIZATION) AM (IN THE MORNING)
     Route: 065
  12. TACROLIMUS [Suspect]
     Dosage: 1 MG, (DAY 6,7 AND 9 OF HOSPITALIZATION) PM (IN THE EVENING)
     Route: 065
  13. TACROLIMUS [Suspect]
     Dosage: 2 MG, (DAY 14 OF HOSPITALIZATION) AM + PM (IN THE MORNING)
     Route: 065
  14. TACROLIMUS [Suspect]
     Dosage: 3 MG, (DAY 30 AND 43 OF HOSPITALIZATION) AM + PM (IN THE MORNING)
     Route: 065
  15. ATORVASTATIN [Concomitant]
     Indication: PRODUCT USED FOR UNKNOWN INDICATION
     Dosage: 10 MG, 1X/DAY
     Route: 065
  16. PREDNISONE [Concomitant]
     Indication: PRODUCT USED FOR UNKNOWN INDICATION
     Dosage: 5 MG, 1X/DAY
     Route: 065
  17. LISINOPRIL [Concomitant]
     Indication: PRODUCT USED FOR UNKNOWN INDICATION
     Dosage: 10 MG, 1X/DAY
     Route: 065
  18. ESTROGENS CONJUGATED [Concomitant]
     Indication: PRODUCT USED FOR UNKNOWN INDICATION
     Dosage: 2.5 MG, 1X/DAY
     Route: 065
  19. SUMATRIPTAN [Concomitant]
     Indication: PRODUCT USED FOR UNKNOWN INDICATION
     Route: 065
  20. NORMAL SALINE [Concomitant]
     Indication: PRODUCT USED FOR UNKNOWN INDICATION
     Dosage: 2 L, UNK
     Route: 042

REACTIONS (2)
  - DRUG INTERACTION [None]
  - DRUG LEVEL INCREASED [None]
